FAERS Safety Report 22125394 (Version 1)
Quarter: 2023Q1

REPORT INFORMATION
  Report Type: Report from Study
  Country: EG (occurrence: EG)
  Receive Date: 20230322
  Receipt Date: 20230322
  Transmission Date: 20230418
  Serious: Yes (Life-Threatening, Hospitalization, Other)
  Sender: FDA-Public Use
  Company Number: EG-002147023-NVSC2023EG065555

PATIENT
  Sex: Female

DRUGS (7)
  1. ENTRESTO [Suspect]
     Active Substance: SACUBITRIL\VALSARTAN
     Indication: Cardiac failure
     Dosage: 1 DOSAGE FORM, BID
     Route: 048
     Dates: start: 2021
  2. LASIX [Suspect]
     Active Substance: FUROSEMIDE
     Indication: Diuretic therapy
     Dosage: 9-2 YEARS AND HALF AGO END DATE FROM 1 YEAR
     Route: 048
  3. DAPAGLIFLOZIN [Concomitant]
     Active Substance: DAPAGLIFLOZIN
     Indication: Diabetes mellitus
     Dosage: STARTED FROM 2 YEARS AND HALF
     Route: 048
  4. DAPAGLIFLOZIN [Concomitant]
     Active Substance: DAPAGLIFLOZIN
     Indication: Cardiac disorder
  5. CORDARONE [Concomitant]
     Active Substance: AMIODARONE HYDROCHLORIDE
     Indication: Cardiac failure
     Dosage: STARTED FROM 2 YEARS AND HALF
     Route: 048
  6. DILATROL [Concomitant]
     Indication: Heart rate decreased
     Dosage: STARTED FROM 2 YEARS AND HALF
     Route: 048
  7. NEXIUM [Concomitant]
     Active Substance: ESOMEPRAZOLE MAGNESIUM
     Indication: Prophylaxis
     Dosage: STARTED FROM 2 YEARS AND HALF (ON EMPTY STOMUCH)
     Route: 048

REACTIONS (12)
  - Thrombosis [Unknown]
  - Generalised oedema [Unknown]
  - Effusion [Unknown]
  - Cardiac contractility decreased [Unknown]
  - Gait disturbance [Unknown]
  - Blood pressure fluctuation [Unknown]
  - Dizziness [Unknown]
  - Drug ineffective [Unknown]
  - Pulmonary artery occlusion [Recovering/Resolving]
  - Cough [Recovering/Resolving]
  - Atrial flutter [Unknown]
  - Heart valve incompetence [Unknown]

NARRATIVE: CASE EVENT DATE: 20210101
